FAERS Safety Report 24706308 (Version 2)
Quarter: 2024Q4

REPORT INFORMATION
  Report Type: Report from Study
  Country: US (occurrence: US)
  Receive Date: 20241206
  Receipt Date: 20241212
  Transmission Date: 20250115
  Serious: Yes (Other)
  Sender: ELI LILLY AND COMPANY
  Company Number: US-ELI_LILLY_AND_COMPANY-US202411018254

PATIENT
  Age: 61 Year
  Sex: Female

DRUGS (2)
  1. FORTEO [Suspect]
     Active Substance: TERIPARATIDE
     Indication: Product used for unknown indication
     Dosage: UNK, UNKNOWN
     Route: 065
     Dates: start: 20240731
  2. FORTEO [Suspect]
     Active Substance: TERIPARATIDE
     Dosage: 20 UG, DAILY
     Route: 058
     Dates: start: 202408

REACTIONS (16)
  - Open globe injury [Unknown]
  - Nephrolithiasis [Unknown]
  - Vision blurred [Unknown]
  - Dry mouth [Unknown]
  - Neuralgia [Unknown]
  - Hypotension [Unknown]
  - Breast mass [Unknown]
  - Injection site erythema [Unknown]
  - Injection site rash [Unknown]
  - Accidental underdose [Unknown]
  - Accidental exposure to product [Unknown]
  - Renal mass [Unknown]
  - Arthralgia [Unknown]
  - Injection site bruising [Unknown]
  - Injection site pain [Unknown]
  - Muscle spasms [Unknown]

NARRATIVE: CASE EVENT DATE: 20240901
